FAERS Safety Report 4766122-0 (Version None)
Quarter: 2005Q3

REPORT INFORMATION
  Report Type: 
  Country: None (occurrence: None)
  Receive Date: 20050909
  Receipt Date: 20041202
  Transmission Date: 20060218
  Serious: Yes (Other)
  Sender: FDA-Public Use
  Company Number: ALMO2004047

PATIENT
  Age: 52 Year
  Sex: Female

DRUGS (4)
  1. ALMOGRAN [Suspect]
     Indication: MIGRAINE
     Dosage: 12.5 MG ONCE PO
     Route: 048
     Dates: start: 20040620, end: 20040620
  2. ESTRADIOL [Concomitant]
  3. PHENOXYMETHYLPENICILLIN ^SLOVAKOFARMA^ [Concomitant]
  4. PRAVACHOL [Concomitant]

REACTIONS (9)
  - ANXIETY [None]
  - ARTERIOSPASM CORONARY [None]
  - CORONARY ARTERY DISEASE [None]
  - ELECTROCARDIOGRAM ST SEGMENT DEPRESSION [None]
  - ELECTROCARDIOGRAM T WAVE INVERSION [None]
  - FATIGUE [None]
  - HYPERHIDROSIS [None]
  - MYOCARDIAL ISCHAEMIA [None]
  - NAUSEA [None]
